FAERS Safety Report 5022608-5 (Version None)
Quarter: 2006Q2

REPORT INFORMATION
  Report Type: 
  Country: None (occurrence: None)
  Receive Date: 20060605
  Receipt Date: 20060524
  Transmission Date: 20061013
  Serious: Yes (Other)
  Sender: FDA-Public Use
  Company Number: GB200605005336

PATIENT
  Age: 29 Year
  Sex: Male

DRUGS (3)
  1. OLANZAPINE [Suspect]
     Indication: SCHIZOPHRENIA
     Dosage: 20 MG, DAILY (1/D), ORAL
     Route: 048
     Dates: start: 20060313, end: 20060406
  2. AMISULPRIDE (AMISULPRIDE) [Concomitant]
  3. CLOZARIL [Concomitant]

REACTIONS (5)
  - BLOOD CREATININE INCREASED [None]
  - CHEST PAIN [None]
  - ELECTROCARDIOGRAM ST SEGMENT DEPRESSION [None]
  - EXTRASYSTOLES [None]
  - SALIVARY HYPERSECRETION [None]
